FAERS Safety Report 18366683 (Version 1)
Quarter: 2020Q4

REPORT INFORMATION
  Report Type: Spontaneous
  Country: IN (occurrence: IN)
  Receive Date: 20201009
  Receipt Date: 20201009
  Transmission Date: 20210114
  Serious: Yes (Death, Other)
  Sender: FDA-Public Use
  Company Number: IN-PFIZER INC-2019444149

PATIENT
  Age: 70 Year
  Sex: Male

DRUGS (6)
  1. PAN [Concomitant]
     Dosage: 40 MG, 1 TAB BBF, 7 DAYS
  2. SUTENT [Suspect]
     Active Substance: SUNITINIB MALATE
     Indication: METASTATIC RENAL CELL CARCINOMA
     Dosage: 50 MG, CYCLIC (1X/DAY, 2 WEEKS ON AND 1WEEK OFF)
     Route: 048
     Dates: start: 20191003, end: 201910
  3. HALOG [Concomitant]
     Active Substance: HALCINONIDE
     Dosage: UNK, 2X/DAY (LOCALLY BID)
  4. PAN [Concomitant]
     Dosage: 40 MG, (1 TAB ^ BBF 4, 2 DAYS^)
  5. CORTINA [HYDROCORTISONE ACETATE] [Concomitant]
     Dosage: UNK (AS PRESCRIBED BY CARDIOLOGIST)
  6. SUTENT [Suspect]
     Active Substance: SUNITINIB MALATE
     Dosage: 50 MG, CYCLIC (1X/DAY, 4 WEEKS, 2 WEEKS OFF)
     Dates: start: 20191024

REACTIONS (6)
  - Death [Fatal]
  - Haematochezia [Unknown]
  - Hiccups [Unknown]
  - Nausea [Unknown]
  - Neoplasm progression [Unknown]
  - Blood pressure increased [Unknown]

NARRATIVE: CASE EVENT DATE: 20200116
